FAERS Safety Report 21361742 (Version 1)
Quarter: 2022Q3

REPORT INFORMATION
  Report Type: Spontaneous
  Country: US (occurrence: None)
  Receive Date: 20220921
  Receipt Date: 20220921
  Transmission Date: 20221027
  Serious: No
  Sender: FDA-Public Use
  Company Number: None

PATIENT
  Age: 29 Year

DRUGS (1)
  1. HUMIRA [Suspect]
     Active Substance: ADALIMUMAB
     Indication: Juvenile spondyloarthritis
     Dosage: FREQUENCY : WEEKLY;?
     Route: 058
     Dates: start: 202103

REACTIONS (3)
  - COVID-19 [None]
  - Respiratory syncytial virus infection [None]
  - Therapy interrupted [None]
